FAERS Safety Report 17498995 (Version 1)
Quarter: 2020Q1

REPORT INFORMATION
  Report Type: Spontaneous
  Country: CZ (occurrence: CZ)
  Receive Date: 20200304
  Receipt Date: 20200304
  Transmission Date: 20200409
  Serious: Yes (Other)
  Sender: FDA-Public Use
  Company Number: CZ-MYLANLABS-2020M1023356

PATIENT
  Age: 30 Year
  Sex: Male

DRUGS (4)
  1. CARBAMAZEPIN [Suspect]
     Active Substance: CARBAMAZEPINE
     Indication: IDIOPATHIC GENERALISED EPILEPSY
     Dosage: 600 MILLIGRAM, QD
     Route: 065
  2. LAMOTRIGINE. [Suspect]
     Active Substance: LAMOTRIGINE
     Indication: IDIOPATHIC GENERALISED EPILEPSY
     Dosage: 100 MILLIGRAM, QD
     Route: 065
  3. CLONAZEPAM. [Suspect]
     Active Substance: CLONAZEPAM
     Indication: IDIOPATHIC GENERALISED EPILEPSY
     Dosage: 2-3 MG DAILY
     Route: 065
  4. VALPROIC ACID. [Suspect]
     Active Substance: VALPROIC ACID
     Indication: IDIOPATHIC GENERALISED EPILEPSY
     Dosage: 2000 MILLIGRAM, QD
     Route: 065

REACTIONS (5)
  - Alopecia [Recovered/Resolved]
  - Osteopenia [Recovered/Resolved]
  - Tremor [Recovered/Resolved]
  - Insomnia [Recovered/Resolved]
  - Weight increased [Recovered/Resolved]
